FAERS Safety Report 4969340-1 (Version None)
Quarter: 2006Q2

REPORT INFORMATION
  Report Type: 
  Country: None (occurrence: None)
  Receive Date: 20060406
  Receipt Date: 20060328
  Transmission Date: 20061013
  Serious: Yes (Hospitalization, Other)
  Sender: FDA-Public Use
  Company Number: 2006AL000821

PATIENT
  Age: 22 Year
  Sex: Male

DRUGS (4)
  1. CLONAZEPAM [Suspect]
     Dosage: 0.5 MG;BID;PO
     Route: 048
  2. DEXTROMETHORPHAN HYDROBROMIDE [Suspect]
     Dosage: 900 MG; PO
     Route: 048
  3. LITHIUM CARBONATE [Concomitant]
  4. FLUOXETINE [Concomitant]

REACTIONS (9)
  - AKATHISIA [None]
  - BLOOD PRESSURE INCREASED [None]
  - DRUG ABUSER [None]
  - DRUG TOXICITY [None]
  - INTENTIONAL DRUG MISUSE [None]
  - INTENTIONAL OVERDOSE [None]
  - RESTLESSNESS [None]
  - SEROTONIN SYNDROME [None]
  - SINUS TACHYCARDIA [None]
